FAERS Safety Report 9678913 (Version 1)
Quarter: 2013Q4

REPORT INFORMATION
  Report Type: Spontaneous
  Country: US (occurrence: US)
  Receive Date: 20131108
  Receipt Date: 20131108
  Transmission Date: 20140711
  Serious: Yes (Other)
  Sender: FDA-Public Use
  Company Number: US-PFIZER INC-2013315287

PATIENT
  Sex: Male

DRUGS (4)
  1. GLUCOTROL XL [Suspect]
     Dosage: UNK
  2. CARDURA [Suspect]
     Dosage: UNK
  3. LIPITOR [Suspect]
     Dosage: UNK
  4. VIAGRA [Concomitant]
     Dosage: UNK

REACTIONS (5)
  - Diabetes mellitus [Unknown]
  - Dysuria [Unknown]
  - Pain [Unknown]
  - Mental disorder [Unknown]
  - Prostatic disorder [Unknown]
